FAERS Safety Report 11400221 (Version 1)
Quarter: 2015Q3

REPORT INFORMATION
  Report Type: Spontaneous
  Country: DE (occurrence: DE)
  Receive Date: 20150820
  Receipt Date: 20150820
  Transmission Date: 20151125
  Serious: Yes (Other)
  Sender: FDA-Public Use
  Company Number: DE-ABBVIE-15P-062-1443030-00

PATIENT

DRUGS (2)
  1. VIEKIRAX [Suspect]
     Active Substance: OMBITASVIR\PARITAPREVIR\RITONAVIR
     Indication: HEPATITIS C
     Dosage: 12.5MG/75MG/50MG
     Route: 048
     Dates: start: 20150226, end: 20150521
  2. EXVIERA [Suspect]
     Active Substance: DASABUVIR
     Indication: HEPATITIS C
     Route: 048
     Dates: start: 20150226, end: 20150521

REACTIONS (8)
  - Osteonecrosis [Unknown]
  - Cardiovascular disorder [Unknown]
  - Mobility decreased [Unknown]
  - Bone marrow oedema syndrome [Unknown]
  - Musculoskeletal discomfort [Unknown]
  - Bone cyst [Unknown]
  - Pain [Unknown]
  - X-ray of pelvis and hip abnormal [Unknown]

NARRATIVE: CASE EVENT DATE: 201503
